FAERS Safety Report 12468839 (Version 2)
Quarter: 2016Q3

REPORT INFORMATION
  Report Type: Spontaneous
  Country: FR (occurrence: FR)
  Receive Date: 20160615
  Receipt Date: 20160830
  Transmission Date: 20161109
  Serious: Yes (Life-Threatening, Hospitalization)
  Sender: FDA-Public Use
  Company Number: FR-JNJFOC-20160606530

PATIENT
  Age: 50 Year
  Sex: Female
  Weight: 105 kg

DRUGS (1)
  1. XEPLION [Suspect]
     Active Substance: PALIPERIDONE PALMITATE
     Indication: PRODUCT USED FOR UNKNOWN INDICATION
     Route: 030
     Dates: start: 2013, end: 201604

REACTIONS (5)
  - Coma [Recovered/Resolved]
  - Diabetes mellitus [Not Recovered/Not Resolved]
  - Malaise [Recovered/Resolved]
  - Chronic kidney disease [Recovered/Resolved]
  - Metabolic acidosis [Recovered/Resolved]

NARRATIVE: CASE EVENT DATE: 201604
